FAERS Safety Report 4823748-3 (Version None)
Quarter: 2005Q4

REPORT INFORMATION
  Report Type: 
  Country: None (occurrence: None)
  Receive Date: 20051109
  Receipt Date: 20051102
  Transmission Date: 20060501
  Serious: Yes (Hospitalization)
  Sender: FDA-Public Use
  Company Number: 2005SE06281

PATIENT
  Age: 79 Year
  Sex: Female

DRUGS (5)
  1. BLOPRESS [Suspect]
     Indication: HYPERTENSION
     Route: 048
     Dates: end: 20050925
  2. TORASEM-MEPHA [Suspect]
     Indication: HYPERTENSION
     Route: 048
     Dates: end: 20050925
  3. LEXOTANIL [Concomitant]
     Route: 048
     Dates: start: 20050924, end: 20050925
  4. LESCOL [Concomitant]
     Route: 048
  5. MAGNESIUM-DIASPORAL [Concomitant]
     Route: 048

REACTIONS (4)
  - DEPRESSED LEVEL OF CONSCIOUSNESS [None]
  - DRUG INTERACTION [None]
  - ORTHOSTATIC HYPOTENSION [None]
  - SYNCOPE [None]
